FAERS Safety Report 10706825 (Version 2)
Quarter: 2015Q1

REPORT INFORMATION
  Report Type: Report from Study
  Country: JP (occurrence: JP)
  Receive Date: 20150113
  Receipt Date: 20150113
  Transmission Date: 20150721
  Serious: Yes (Hospitalization, Other)
  Sender: FDA-Public Use
  Company Number: PHHY2010JP13669

PATIENT
  Age: 57 Year
  Sex: Female
  Weight: 156 kg

DRUGS (6)
  1. PREDONINE [Concomitant]
     Active Substance: PREDNISOLONE\PREDNISOLONE ACETATE\PREDNISOLONE SODIUM SUCCINATE
     Indication: CHRONIC MYELOID LEUKAEMIA
     Dosage: 60 MG, UNK
     Route: 048
     Dates: start: 20100106
  2. LEUNASE [Concomitant]
     Active Substance: ASPARAGINASE
     Indication: CHRONIC MYELOID LEUKAEMIA
     Dosage: 4300 IU, UNK
     Route: 042
     Dates: start: 20100106
  3. DAUNOMYCIN [Concomitant]
     Active Substance: DAUNORUBICIN
     Indication: CHRONIC MYELOID LEUKAEMIA
     Dosage: 30 MG, UNK
     Route: 042
     Dates: start: 20100118
  4. ONCOVIN [Concomitant]
     Active Substance: VINCRISTINE SULFATE
     Indication: CHRONIC MYELOID LEUKAEMIA
     Dosage: 1 MG, UNK
     Route: 042
     Dates: start: 20100105, end: 20100112
  5. AMN107 [Suspect]
     Active Substance: NILOTINIB
     Indication: CHRONIC MYELOID LEUKAEMIA
     Dosage: 800 MG, QD
     Route: 048
     Dates: start: 20100104, end: 20100201
  6. CYLOCIDE [Concomitant]
     Active Substance: CYTARABINE
     Indication: CHRONIC MYELOID LEUKAEMIA
     Dosage: 140 MG, UNK
     Route: 042
     Dates: start: 20100118

REACTIONS (6)
  - Blast cell crisis [Unknown]
  - Chronic myeloid leukaemia transformation [Unknown]
  - Drug ineffective [Unknown]
  - Haemoglobin decreased [Unknown]
  - Blood lactate dehydrogenase increased [Unknown]
  - White blood cell count increased [Unknown]

NARRATIVE: CASE EVENT DATE: 20100201
